FAERS Safety Report 8495640 (Version 4)
Quarter: 2013Q2

REPORT INFORMATION
  Report Type: Spontaneous
  Country: DE (occurrence: None)
  Receive Date: 20120329
  Receipt Date: 20130516
  Transmission Date: 20140414
  Serious: Yes (Death)
  Sender: FDA-Public Use
  Company Number: IMP_05810_2012

PATIENT
  Age: 20 Year
  Sex: Female

DRUGS (3)
  1. MINOCYCLINE [Suspect]
     Indication: PRODUCT USED FOR UNKNOWN INDICATION
     Dosage: (DF)
  2. BISOPROLOL [Concomitant]
  3. POTASSIUM IODIDE [Concomitant]

REACTIONS (5)
  - Sudden death [None]
  - Thyroid disorder [None]
  - Resuscitation [None]
  - Myocarditis [None]
  - Arrhythmia [None]
